FAERS Safety Report 24560704 (Version 1)
Quarter: 2024Q4

REPORT INFORMATION
  Report Type: Report from Study
  Country: US (occurrence: US)
  Receive Date: 20241029
  Receipt Date: 20241029
  Transmission Date: 20250114
  Serious: No
  Sender: DR REDDYS
  Company Number: US-DRL-USA-CLI/USA/24/0015611

PATIENT
  Age: 32 Year
  Sex: Male
  Weight: 152.9 kg

DRUGS (1)
  1. JAVYGTOR [Suspect]
     Active Substance: SAPROPTERIN DIHYDROCHLORIDE
     Indication: Phenylketonuria
     Route: 065

REACTIONS (2)
  - Abdominal discomfort [Unknown]
  - Product dose omission issue [Unknown]
